FAERS Safety Report 7595399-1 (Version None)
Quarter: 2011Q3

REPORT INFORMATION
  Report Type: 
  Country: None (occurrence: None)
  Receive Date: 20110707
  Receipt Date: 20110627
  Transmission Date: 20111222
  Serious: Yes (Death, Hospitalization, Other)
  Sender: FDA-Public Use
  Company Number: CH-MPIJNJ-2011-02713

PATIENT

DRUGS (7)
  1. DEXAMETHASONE [Suspect]
     Indication: PRODUCT USED FOR UNKNOWN INDICATION
     Dosage: 20 MG, CYCLIC
     Route: 048
     Dates: start: 20110228, end: 20110303
  2. MORPHINE [Concomitant]
     Dosage: 15 DF, UNK
     Route: 048
  3. VELCADE [Suspect]
     Indication: MULTIPLE MYELOMA
     Dosage: 1.3 MG, CYCLIC
     Route: 042
     Dates: start: 20110228, end: 20110303
  4. LISINOPRIL [Suspect]
     Indication: PRODUCT USED FOR UNKNOWN INDICATION
     Dosage: 10 MG, UNK
     Route: 048
  5. MADOPAR                            /00349201/ [Suspect]
     Indication: PRODUCT USED FOR UNKNOWN INDICATION
     Dosage: 125 MG, UNK
     Route: 048
     Dates: start: 20110301, end: 20110301
  6. MS CONTIN [Concomitant]
     Dosage: 30 MG, TID
  7. QUININE SULFATE [Suspect]
     Indication: PRODUCT USED FOR UNKNOWN INDICATION
     Dosage: 1 DF, UNK
     Route: 048
     Dates: start: 20110301, end: 20110301

REACTIONS (7)
  - PULMONARY EMBOLISM [None]
  - HAEMOPTYSIS [None]
  - PNEUMONIA KLEBSIELLA [None]
  - RENAL FAILURE ACUTE [None]
  - EPISTAXIS [None]
  - THROMBOCYTOPENIA [None]
  - COAGULATION FACTOR V LEVEL DECREASED [None]
